FAERS Safety Report 12141670 (Version 1)
Quarter: 2016Q1

REPORT INFORMATION
  Report Type: Spontaneous
  Country: CO (occurrence: CO)
  Receive Date: 20160303
  Receipt Date: 20160303
  Transmission Date: 20160526
  Serious: Yes (Other)
  Sender: FDA-Public Use
  Company Number: CO-PFIZER INC-2016125118

PATIENT
  Age: 4 Year
  Sex: Male
  Weight: 12 kg

DRUGS (1)
  1. GENOTROPIN [Suspect]
     Active Substance: SOMATROPIN
     Indication: GROWTH HORMONE DEFICIENCY
     Dosage: 0.6 MG, DAILY
     Route: 058
     Dates: start: 201602

REACTIONS (3)
  - Tooth injury [Unknown]
  - Fall [Unknown]
  - Mouth injury [Unknown]

NARRATIVE: CASE EVENT DATE: 20160223
